FAERS Safety Report 6349273-9 (Version None)
Quarter: 2009Q3

REPORT INFORMATION
  Report Type: 
  Country: None (occurrence: None)
  Receive Date: 20090911
  Receipt Date: 20090908
  Transmission Date: 20100115
  Serious: Yes (Other)
  Sender: FDA-Public Use
  Company Number: A0806430A

PATIENT
  Age: 43 Year
  Sex: Female
  Weight: 51.4 kg

DRUGS (2)
  1. FLOVENT [Suspect]
     Indication: DRUG USE FOR UNKNOWN INDICATION
     Route: 065
  2. VENTOLIN [Concomitant]
     Route: 065

REACTIONS (8)
  - ANXIETY [None]
  - ASTHENIA [None]
  - CHEST DISCOMFORT [None]
  - DYSPEPSIA [None]
  - DYSSTASIA [None]
  - HYPERHIDROSIS [None]
  - MALAISE [None]
  - TREMOR [None]
